FAERS Safety Report 19260157 (Version 1)
Quarter: 2021Q2

REPORT INFORMATION
  Report Type: Spontaneous
  Country: FR (occurrence: FR)
  Receive Date: 20210514
  Receipt Date: 20210514
  Transmission Date: 20210717
  Serious: Yes (Hospitalization)
  Sender: FDA-Public Use
  Company Number: FR-ELI_LILLY_AND_COMPANY-FR202105000962

PATIENT
  Age: 15 Year
  Sex: Male
  Weight: 67 kg

DRUGS (1)
  1. UMATROPE [Suspect]
     Active Substance: SOMATROPIN
     Indication: GROWTH HORMONE DEFICIENCY
     Dosage: 35 MG/KG, DAILY
     Route: 058
     Dates: start: 20100401, end: 20191014

REACTIONS (1)
  - Pilonidal cyst [Recovering/Resolving]

NARRATIVE: CASE EVENT DATE: 20210220
